FAERS Safety Report 5058556-4 (Version None)
Quarter: 2006Q2

REPORT INFORMATION
  Report Type: 
  Country: None (occurrence: None)
  Receive Date: 20060627
  Receipt Date: 20051222
  Transmission Date: 20061013
  Serious: Yes (Death, Hospitalization)
  Sender: FDA-Public Use
  Company Number: 429788

PATIENT
  Age: 79 Year
  Sex: Male
  Weight: 99.8 kg

DRUGS (4)
  1. XELODA [Suspect]
     Indication: COLORECTAL CANCER
     Dosage: 4 DOSE FORM 2 PER DAY ORAL
     Route: 048
     Dates: start: 20051110, end: 20051124
  2. ANTIHYPERTENSIVE (ANTIHYPERTENSIVE NOS) [Concomitant]
  3. CHEMOTHERAPY (ANTINEOPLASTIC AGENT NOS) [Concomitant]
  4. .. [Concomitant]

REACTIONS (7)
  - CHORIOCARCINOMA [None]
  - DIARRHOEA [None]
  - NAUSEA [None]
  - PNEUMONIA [None]
  - RENAL FAILURE ACUTE [None]
  - VOMITING [None]
  - WEIGHT DECREASED [None]
